FAERS Safety Report 22146049 (Version 1)
Quarter: 2023Q1

REPORT INFORMATION
  Report Type: Spontaneous
  Country: US (occurrence: US)
  Receive Date: 20230328
  Receipt Date: 20230328
  Transmission Date: 20230417
  Serious: Yes (Hospitalization)
  Sender: FDA-Public Use
  Company Number: US-MYLANLABS-2023M1032710

PATIENT
  Age: 71 Year
  Sex: Female

DRUGS (4)
  1. PREDNISONE [Suspect]
     Active Substance: PREDNISONE
     Indication: Acquired amegakaryocytic thrombocytopenia
     Dosage: 1 MILLIGRAM/KILOGRAM
     Route: 065
  2. PREDNISONE [Suspect]
     Active Substance: PREDNISONE
     Dosage: UNK, TAPERED OFF
     Route: 065
  3. HUMAN IMMUNOGLOBULIN G [Suspect]
     Active Substance: HUMAN IMMUNOGLOBULIN G
     Indication: Acquired amegakaryocytic thrombocytopenia
     Dosage: UNK
     Route: 042
  4. RITUXIMAB [Suspect]
     Active Substance: RITUXIMAB
     Indication: Acquired amegakaryocytic thrombocytopenia
     Dosage: 375 MILLIGRAM/SQ. METER, QW
     Route: 065

REACTIONS (1)
  - Drug ineffective [Unknown]
